FAERS Safety Report 14309646 (Version 2)
Quarter: 2018Q1

REPORT INFORMATION
  Report Type: Spontaneous
  Country: DE (occurrence: DE)
  Receive Date: 20171220
  Receipt Date: 20180123
  Transmission Date: 20180509
  Serious: Yes (Other)
  Sender: FDA-Public Use
  Company Number: DE-PFIZER INC-2017538292

PATIENT
  Age: 45 Year
  Sex: Female

DRUGS (2)
  1. NITROGLYCERIN. [Concomitant]
     Active Substance: NITROGLYCERIN
     Dosage: UNK
     Route: 061
  2. FASTJEKT [Suspect]
     Active Substance: EPINEPHRINE
     Dosage: UNK (HIGH DOSE)

REACTIONS (5)
  - Accidental exposure to product [Recovered/Resolved]
  - Injection site ischaemia [Recovered/Resolved]
  - Injection site coldness [Recovered/Resolved]
  - Injection site pallor [Recovered/Resolved]
  - Capillary nail refill test abnormal [Recovered/Resolved]
